FAERS Safety Report 9693827 (Version 1)
Quarter: 2013Q4

REPORT INFORMATION
  Report Type: Spontaneous
  Country: FR (occurrence: FR)
  Receive Date: 20131118
  Receipt Date: 20131118
  Transmission Date: 20140711
  Serious: Yes (Hospitalization)
  Sender: FDA-Public Use
  Company Number: PHHY2013FR130872

PATIENT
  Age: 76 Year
  Sex: Female

DRUGS (8)
  1. TEGRETOL [Suspect]
     Dosage: 250 MG, THRICE DAILY
     Route: 048
     Dates: start: 20130819, end: 20130821
  2. TEGRETOL [Suspect]
     Dosage: TEGRETOL DOSAGE REGIMEN WAS DECREASED
     Route: 048
     Dates: start: 20130821, end: 20130823
  3. TEGRETOL [Suspect]
     Dosage: 250 MG, THRICE DAILY
     Route: 048
     Dates: start: 20130823, end: 20130913
  4. KEPPRA [Concomitant]
     Dosage: 500 MG, BID
     Dates: end: 20130904
  5. KEPPRA [Concomitant]
     Dosage: KEPPRA DOSAGE REGIMEN WAS PROGRESSIVELY DECREASED
     Dates: start: 20130904
  6. LODOZ [Concomitant]
     Dosage: UNK UKN, QD
  7. ZOLOFT [Concomitant]
     Dosage: 50 MG, QD
  8. VITAMIN B12 [Concomitant]
     Dosage: UNK UKN, QD

REACTIONS (3)
  - Hallucination [Recovered/Resolved]
  - Dystonia [Recovered/Resolved]
  - Confusional state [Recovered/Resolved]
